FAERS Safety Report 18943664 (Version 1)
Quarter: 2021Q1

REPORT INFORMATION
  Report Type: Spontaneous
  Country: US (occurrence: US)
  Receive Date: 20210226
  Receipt Date: 20210226
  Transmission Date: 20210420
  Serious: No
  Sender: FDA-Public Use
  Company Number: US-ALLERGAN-2101860US

PATIENT
  Sex: Female

DRUGS (2)
  1. SAVELLA [Suspect]
     Active Substance: MILNACIPRAN HYDROCHLORIDE
     Indication: PAIN
     Dosage: 12.5 MG
  2. SAVELLA [Suspect]
     Active Substance: MILNACIPRAN HYDROCHLORIDE
     Indication: TRIGEMINAL NEURALGIA

REACTIONS (4)
  - Product use in unapproved indication [Unknown]
  - Arthralgia [Unknown]
  - Drug effective for unapproved indication [Unknown]
  - Muscle rigidity [Unknown]
